FAERS Safety Report 9473803 (Version 2)
Quarter: 2013Q3

REPORT INFORMATION
  Report Type: Spontaneous
  Country: US (occurrence: US)
  Receive Date: 20130823
  Receipt Date: 20130823
  Transmission Date: 20140515
  Serious: No
  Sender: FDA-Public Use
  Company Number: US-BRISTOL-MYERS SQUIBB COMPANY-17002247

PATIENT
  Age: 60 Year
  Sex: Female

DRUGS (8)
  1. SPRYCEL [Suspect]
     Indication: CHRONIC MYELOID LEUKAEMIA
     Route: 048
     Dates: start: 20120823
  2. LUMIGAN [Concomitant]
  3. FLOMAX [Concomitant]
  4. MOTRIN [Concomitant]
  5. GABAPENTIN [Concomitant]
  6. MAGNESIUM [Concomitant]
  7. VITAMIN D [Concomitant]
  8. COSOPT [Concomitant]

REACTIONS (5)
  - Decreased appetite [Recovered/Resolved]
  - Constipation [Unknown]
  - Fatigue [Unknown]
  - Pyrexia [Unknown]
  - Chills [Unknown]
